FAERS Safety Report 6592433-2 (Version None)
Quarter: 2010Q1

REPORT INFORMATION
  Report Type: 
  Country: None (occurrence: None)
  Receive Date: 20100221
  Receipt Date: 20091009
  Transmission Date: 20100710
  Serious: No
  Sender: FDA-Public Use
  Company Number: US-ALLERGAN-0914047US

PATIENT
  Age: 36 Year
  Sex: Female

DRUGS (2)
  1. BOTOX COSMETIC [Suspect]
     Indication: SKIN WRINKLING
     Dosage: 40 UNITS, UNK
     Dates: start: 20090930, end: 20090930
  2. BOTOX COSMETIC [Suspect]
     Dosage: 12 UNK, UNK
     Dates: start: 20091008, end: 20091008

REACTIONS (1)
  - THERAPEUTIC RESPONSE DECREASED [None]
